FAERS Safety Report 4711570-8 (Version None)
Quarter: 2005Q3

REPORT INFORMATION
  Report Type: 
  Country: None (occurrence: None)
  Receive Date: 20050708
  Receipt Date: 20050708
  Transmission Date: 20060218
  Serious: Yes (Hospitalization, Other)
  Sender: FDA-Public Use
  Company Number: None

PATIENT
  Age: 20 Year
  Sex: Male
  Weight: 79.3795 kg

DRUGS (2)
  1. OXYCODONE 5 MG ETHEX BRAND CHANGE COLOR [Suspect]
     Indication: BACK PAIN
     Dosage: 5 MG
     Dates: start: 20050705, end: 20050707
  2. KETOPROFEN [Concomitant]

REACTIONS (3)
  - DIZZINESS [None]
  - DYSPNOEA [None]
  - NAUSEA [None]
